FAERS Safety Report 12528939 (Version 3)
Quarter: 2016Q3

REPORT INFORMATION
  Report Type: Spontaneous
  Country: JP (occurrence: JP)
  Receive Date: 20160705
  Receipt Date: 20160823
  Transmission Date: 20161109
  Serious: Yes (Other)
  Sender: FDA-Public Use
  Company Number: JP-SA-2016SA120493

PATIENT
  Age: 72 Year
  Sex: Male

DRUGS (13)
  1. VOGLIBOSE [Suspect]
     Active Substance: VOGLIBOSE
     Route: 065
  2. ASPARA POTASSIUM [Suspect]
     Active Substance: POTASSIUM ASPARTATE
     Route: 065
  3. PLAVIX [Suspect]
     Active Substance: CLOPIDOGREL BISULFATE
     Indication: CARDIAC DISORDER
     Route: 048
  4. LANTUS [Suspect]
     Active Substance: INSULIN GLARGINE
     Dosage: DOSE:10 UNIT(S)
     Route: 058
  5. LASIX [Suspect]
     Active Substance: FUROSEMIDE
     Route: 065
  6. TRAZENTA [Suspect]
     Active Substance: LINAGLIPTIN
     Route: 065
  7. MICAMLO [Suspect]
     Active Substance: AMLODIPINE BESYLATE\TELMISARTAN
     Route: 065
  8. LANTUS [Suspect]
     Active Substance: INSULIN GLARGINE
     Dosage: DOSE:3 UNIT(S)
     Route: 058
     Dates: start: 20160618
  9. LANTUS [Suspect]
     Active Substance: INSULIN GLARGINE
     Dosage: DOSE:6 UNIT(S)
     Route: 058
     Dates: end: 20160617
  10. ASPIRIN. [Suspect]
     Active Substance: ASPIRIN
     Route: 065
  11. CARVEDILOL. [Suspect]
     Active Substance: CARVEDILOL
     Route: 065
  12. VESICARE [Suspect]
     Active Substance: SOLIFENACIN SUCCINATE
     Route: 065
  13. NICORANDIL [Suspect]
     Active Substance: NICORANDIL
     Route: 065

REACTIONS (2)
  - Ascites [Unknown]
  - Blood glucose increased [Unknown]

NARRATIVE: CASE EVENT DATE: 20160625
